FAERS Safety Report 6901693-7 (Version None)
Quarter: 2010Q3

REPORT INFORMATION
  Report Type: 
  Country: None (occurrence: None)
  Receive Date: 20100803
  Receipt Date: 20080307
  Transmission Date: 20110219
  Serious: No
  Sender: FDA-Public Use
  Company Number: US-PFIZER INC-2008021704

PATIENT
  Sex: Male
  Weight: 72.7 kg

DRUGS (5)
  1. LYRICA [Suspect]
     Indication: PAIN
     Dates: start: 20080306, end: 20080307
  2. VEROLIN [Concomitant]
  3. OXYCODONE [Concomitant]
  4. HYDROCODONE BITARTRATE [Concomitant]
  5. ATENOLOL [Concomitant]

REACTIONS (1)
  - INSOMNIA [None]
